FAERS Safety Report 17352542 (Version 1)
Quarter: 2020Q1

REPORT INFORMATION
  Report Type: Spontaneous
  Country: US (occurrence: US)
  Receive Date: 20200131
  Receipt Date: 20200131
  Transmission Date: 20200409
  Serious: No
  Sender: FDA-Public Use
  Company Number: US-AMGEN-USASP2020014707

PATIENT
  Age: 82 Year
  Sex: Female

DRUGS (3)
  1. PROLIA [Suspect]
     Active Substance: DENOSUMAB
     Indication: OSTEOPOROSIS POSTMENOPAUSAL
     Dosage: 60 MILLIGRAM
     Route: 065
     Dates: start: 201907
  2. VITAMIN D 2000 [Concomitant]
     Active Substance: VITAMIN D NOS
     Dosage: UNK UNK, QD
  3. CALCIUM [Concomitant]
     Active Substance: CALCIUM
     Dosage: 250 UNK, QD

REACTIONS (9)
  - Asthenia [Unknown]
  - Abdominal pain [Unknown]
  - Blood calcium decreased [Unknown]
  - Pain in extremity [Unknown]
  - Bone density decreased [Unknown]
  - Pain in jaw [Unknown]
  - Muscle spasms [Unknown]
  - Back pain [Unknown]
  - Rash macular [Unknown]
